FAERS Safety Report 26061270 (Version 2)
Quarter: 2025Q4

REPORT INFORMATION
  Report Type: Report from Study
  Country: TW (occurrence: TW)
  Receive Date: 20251118
  Receipt Date: 20251224
  Transmission Date: 20260118
  Serious: Yes (Other)
  Sender: BIOGEN
  Company Number: TW-BIOGEN-2025BI01307467

PATIENT
  Age: 13 Year
  Sex: Female

DRUGS (1)
  1. SPINRAZA [Suspect]
     Active Substance: NUSINERSEN
     Indication: Spinal muscular atrophy
     Dosage: DOSAGE TEXT:4 LOADING DOSES ON DAYS 0, 14, 28 AND 63. MAINTENANCE DOSE ADMINISTERED ONCE EVERY 4 MONTHS THEREAFTER
     Dates: start: 20231122

REACTIONS (5)
  - Affective disorder [Not Recovered/Not Resolved]
  - Suicidal ideation [Unknown]
  - Fall [Recovered/Resolved]
  - Depression [Unknown]
  - Abnormal behaviour [Unknown]

NARRATIVE: CASE EVENT DATE: 20250101
